FAERS Safety Report 21086983 (Version 1)
Quarter: 2022Q3

REPORT INFORMATION
  Report Type: Spontaneous
  Country: US (occurrence: None)
  Receive Date: 20220714
  Receipt Date: 20220714
  Transmission Date: 20221027
  Serious: Yes (Death)
  Sender: FDA-Public Use
  Company Number: None

PATIENT
  Sex: Female

DRUGS (20)
  1. CINACALCET HYDROCHLORIDE [Suspect]
     Active Substance: CINACALCET HYDROCHLORIDE
     Indication: Hyperparathyroidism
     Dosage: TAKE 1 TABLET (30 MG) BY MOUTH DAILY WITH FOOD. SWALLOW WHOLE. DO NOT CRUSH OR CHEW.?
     Route: 048
     Dates: start: 20220415, end: 20220702
  2. ATORVASTATIN [Concomitant]
     Active Substance: ATORVASTATIN
  3. ELIQUIS [Concomitant]
     Active Substance: APIXABAN
  4. ESCITALOPRAM TAB [Concomitant]
  5. HYDRALAZINE TAB [Concomitant]
  6. HYDROCO/APAP TAB [Concomitant]
  7. HYDROMORPHON TAB [Concomitant]
  8. LIDO/PRILOCN CRE [Concomitant]
  9. METOPROL SUC TAB ER [Concomitant]
  10. OXYCODONE TAB [Concomitant]
  11. PANTOPRAZOLE TAB [Concomitant]
  12. PRASUGREL TAB [Concomitant]
  13. PREDNISONE [Concomitant]
     Active Substance: PREDNISONE
  14. SEVELAMER TAB [Concomitant]
  15. SUCRALFATE SUS [Concomitant]
  16. TACROLIMUS [Concomitant]
     Active Substance: TACROLIMUS
  17. TACROLIMUS A [Concomitant]
  18. TEMAZEPAM [Concomitant]
     Active Substance: TEMAZEPAM
  19. TOPIRAMATE TAB [Concomitant]
  20. VALSARTAN [Concomitant]
     Active Substance: VALSARTAN

REACTIONS (1)
  - Death [None]
